FAERS Safety Report 10503506 (Version 2)
Quarter: 2014Q4

REPORT INFORMATION
  Report Type: Spontaneous
  Country: US (occurrence: US)
  Receive Date: 20141008
  Receipt Date: 20141114
  Transmission Date: 20150528
  Serious: Yes (Hospitalization, Other)
  Sender: FDA-Public Use
  Company Number: US-JNJFOC-20141003317

PATIENT
  Age: 71 Year
  Sex: Female

DRUGS (2)
  1. PARAFON FORTE [Suspect]
     Active Substance: CHLORZOXAZONE
     Indication: BACK PAIN
     Route: 048
  2. ULTRAM [Suspect]
     Active Substance: TRAMADOL HYDROCHLORIDE
     Indication: BACK PAIN
     Route: 048
     Dates: start: 1973

REACTIONS (9)
  - Diabetes mellitus [Not Recovered/Not Resolved]
  - Ear discomfort [Unknown]
  - Treatment noncompliance [Unknown]
  - Pain [Unknown]
  - Pain [Unknown]
  - Intervertebral disc protrusion [Not Recovered/Not Resolved]
  - Sinusitis [Not Recovered/Not Resolved]
  - Back disorder [Unknown]
  - Tremor [Not Recovered/Not Resolved]

NARRATIVE: CASE EVENT DATE: 1993
